FAERS Safety Report 10933246 (Version 2)
Quarter: 2015Q2

REPORT INFORMATION
  Report Type: Report from Study
  Country: US (occurrence: US)
  Receive Date: 20150320
  Receipt Date: 20150622
  Transmission Date: 20150821
  Serious: No
  Sender: FDA-Public Use
  Company Number: US-ABBVIE-15P-163-1360899-00

PATIENT
  Sex: Male

DRUGS (3)
  1. VIEKIRA PAK [Suspect]
     Active Substance: DASABUVIR\OMBITASVIR\PARITAPREVIR\RITONAVIR
     Indication: HEPATIC CIRRHOSIS
  2. VIEKIRA PAK [Suspect]
     Active Substance: DASABUVIR\OMBITASVIR\PARITAPREVIR\RITONAVIR
     Indication: HEPATITIS C
     Dosage: 2 PINK TAB 1 AM AND 1 BEIGE TAB 2X AM/PM
     Route: 048
     Dates: start: 20150207
  3. RIBASPHERE [Concomitant]
     Active Substance: RIBAVIRIN
     Indication: PRODUCT USED FOR UNKNOWN INDICATION
     Dosage: 3 TAB AM AND 3 TAB PM
     Route: 048

REACTIONS (5)
  - Anger [Unknown]
  - Anxiety [Unknown]
  - Insomnia [Unknown]
  - Blood glucose increased [Unknown]
  - Mental disorder [Unknown]

NARRATIVE: CASE EVENT DATE: 2015
